FAERS Safety Report 25593272 (Version 2)
Quarter: 2025Q3

REPORT INFORMATION
  Report Type: Report from Study
  Country: US (occurrence: US)
  Receive Date: 20250722
  Receipt Date: 20250729
  Transmission Date: 20251020
  Serious: No
  Sender: ELI LILLY AND COMPANY
  Company Number: US-ELI_LILLY_AND_COMPANY-US202507016304

PATIENT
  Age: 70 Year
  Sex: Female

DRUGS (2)
  1. TIRZEPATIDE [Suspect]
     Active Substance: TIRZEPATIDE
     Indication: Weight control
     Route: 058
  2. TIRZEPATIDE [Suspect]
     Active Substance: TIRZEPATIDE
     Route: 058
     Dates: start: 20250623

REACTIONS (4)
  - Speech disorder [Unknown]
  - Urticaria [Not Recovered/Not Resolved]
  - Injection site mass [Unknown]
  - Hypersensitivity [Unknown]

NARRATIVE: CASE EVENT DATE: 20250714
